FAERS Safety Report 15085140 (Version 6)
Quarter: 2019Q3

REPORT INFORMATION
  Report Type: Spontaneous
  Country: US (occurrence: US)
  Receive Date: 20180628
  Receipt Date: 20190725
  Transmission Date: 20191004
  Serious: Yes (Hospitalization)
  Sender: FDA-Public Use
  Company Number: US-VIFOR (INTERNATIONAL) INC.-VIT-2018-06410

PATIENT
  Sex: Male
  Weight: 53.57 kg

DRUGS (17)
  1. ALBUTEROL SULFATE. [Concomitant]
     Active Substance: ALBUTEROL SULFATE
  2. METHYLPREDNISOLONE. [Concomitant]
     Active Substance: METHYLPREDNISOLONE
  3. SPIRIVA [Concomitant]
     Active Substance: TIOTROPIUM BROMIDE MONOHYDRATE
  4. LISINOPRIL. [Concomitant]
     Active Substance: LISINOPRIL
  5. LORAZEPAM. [Concomitant]
     Active Substance: LORAZEPAM
  6. BUDESONIDE. [Concomitant]
     Active Substance: BUDESONIDE
  7. TORSEMIDE. [Concomitant]
     Active Substance: TORSEMIDE
  8. PRAVASTATIN SODIUM. [Concomitant]
     Active Substance: PRAVASTATIN SODIUM
  9. CYCLOBENZAPRINE HCL [Concomitant]
     Active Substance: CYCLOBENZAPRINE HYDROCHLORIDE
  10. CHOLECALCIFEROL [Concomitant]
     Active Substance: CHOLECALCIFEROL
  11. AMLODIPINE BESYLATE. [Concomitant]
     Active Substance: AMLODIPINE BESYLATE
  12. VELTASSA [Suspect]
     Active Substance: PATIROMER
     Indication: HYPERKALAEMIA
     Route: 048
     Dates: start: 20180112
  13. TRAMADOL HCL [Concomitant]
     Active Substance: TRAMADOL HYDROCHLORIDE
  14. ALLOPURINOL. [Concomitant]
     Active Substance: ALLOPURINOL
  15. SPIRONOLACTONE. [Concomitant]
     Active Substance: SPIRONOLACTONE
  16. CARVEDILOL. [Concomitant]
     Active Substance: CARVEDILOL
  17. ROPINIROLE H [Concomitant]

REACTIONS (6)
  - Blood potassium decreased [Unknown]
  - Gait disturbance [Unknown]
  - Product dose omission [Unknown]
  - Influenza like illness [Recovered/Resolved]
  - Muscle spasms [Unknown]
  - Pneumonia [Recovered/Resolved]

NARRATIVE: CASE EVENT DATE: 2018
